FAERS Safety Report 17532966 (Version 1)
Quarter: 2020Q1

REPORT INFORMATION
  Report Type: Spontaneous
  Country: US (occurrence: US)
  Receive Date: 20200312
  Receipt Date: 20200312
  Transmission Date: 20200409
  Serious: No
  Sender: FDA-Public Use
  Company Number: US-TOLMAR, INC.-20US019886

PATIENT
  Sex: Male

DRUGS (1)
  1. ELIGARD [Suspect]
     Active Substance: LEUPROLIDE ACETATE
     Indication: PROSTATE CANCER
     Dosage: 45 MG, EVERY 6 MONTHS
     Route: 058

REACTIONS (5)
  - Wrong technique in product usage process [Unknown]
  - Device connection issue [Unknown]
  - Device leakage [Unknown]
  - Syringe issue [Unknown]
  - Product preparation error [Unknown]

NARRATIVE: CASE EVENT DATE: 20200107
